FAERS Safety Report 23064373 (Version 2)
Quarter: 2023Q4

REPORT INFORMATION
  Report Type: Spontaneous
  Country: IE (occurrence: IT)
  Receive Date: 20231013
  Receipt Date: 20231023
  Transmission Date: 20240110
  Serious: No
  Sender: FDA-Public Use
  Company Number: IE-AMRYT PHARMACEUTICALS DAC-AEGR006698

PATIENT

DRUGS (10)
  1. LOMITAPIDE [Suspect]
     Active Substance: LOMITAPIDE
     Indication: Type IIa hyperlipidaemia
     Dosage: 5 MILLIGRAM, QD
     Dates: start: 20210204, end: 20210716
  2. LOMITAPIDE [Suspect]
     Active Substance: LOMITAPIDE
     Dosage: 10 MILLIGRAM, QD
     Dates: start: 20210717
  3. ROSUVASTATIN [Concomitant]
     Active Substance: ROSUVASTATIN
     Indication: Lipids increased
     Dosage: 40 MILLIGRAM, QD
     Dates: start: 20161121
  4. EZETIMIBE [Concomitant]
     Active Substance: EZETIMIBE
     Indication: Lipids increased
     Dosage: 10 MILLIGRAM, QD
     Dates: start: 20161121
  5. CARVEDILOL [Concomitant]
     Active Substance: CARVEDILOL
     Indication: Product used for unknown indication
  6. AMLODIPINE [Concomitant]
     Active Substance: AMLODIPINE BESYLATE
     Indication: Product used for unknown indication
  7. ASPIRIN [Concomitant]
     Active Substance: ASPIRIN
     Indication: Product used for unknown indication
  8. FUROSEMIDE [Concomitant]
     Active Substance: FUROSEMIDE
     Indication: Product used for unknown indication
  9. CANRENOATE POTASSIUM [Concomitant]
     Active Substance: CANRENOATE POTASSIUM
     Indication: Product used for unknown indication
  10. ALLOPURINOL [Concomitant]
     Active Substance: ALLOPURINOL
     Indication: Product used for unknown indication

REACTIONS (1)
  - Hepatic steatosis [Not Recovered/Not Resolved]

NARRATIVE: CASE EVENT DATE: 20211108
